FAERS Safety Report 7505407-1 (Version None)
Quarter: 2011Q2

REPORT INFORMATION
  Report Type: 
  Country: None (occurrence: None)
  Receive Date: 20110526
  Receipt Date: 20110513
  Transmission Date: 20111010
  Serious: Yes (Other)
  Sender: FDA-Public Use
  Company Number: PHHY2011BE36070

PATIENT
  Sex: Male

DRUGS (4)
  1. AMITRIPTYLINE HCL [Concomitant]
     Dosage: 12.5 MG, UNK
  2. TEGRETOL-XR [Suspect]
     Dosage: 400 MG, BID
     Route: 048
     Dates: start: 19950101
  3. LORMETAZEPAM [Concomitant]
     Dosage: 2 MG, IN EVENING
  4. DEANXIT [Concomitant]

REACTIONS (3)
  - MYOPATHY [None]
  - BLOOD CREATINE PHOSPHOKINASE INCREASED [None]
  - MYALGIA [None]
